FAERS Safety Report 20897223 (Version 1)
Quarter: 2022Q2

REPORT INFORMATION
  Report Type: Spontaneous
  Country: GB (occurrence: GB)
  Receive Date: 20220531
  Receipt Date: 20220531
  Transmission Date: 20220721
  Serious: Yes (Hospitalization)
  Sender: FDA-Public Use
  Company Number: None

PATIENT
  Age: 75 Year
  Sex: Female

DRUGS (17)
  1. PIPERACILLIN SODIUM\TAZOBACTAM SODIUM [Suspect]
     Active Substance: PIPERACILLIN SODIUM\TAZOBACTAM SODIUM
     Dosage: 4.5 MG
     Dates: start: 20210927
  2. GENTAMICIN [Suspect]
     Active Substance: GENTAMICIN
     Dosage: UNK
     Dates: start: 20210927
  3. ACYCLOVIR [Concomitant]
     Active Substance: ACYCLOVIR
     Dosage: 200MG 5 TIMES A DAY FOR 5 DAYS IF NO CONTRAINDICATIONS OR INTERACTIONS.
  4. ALVERINE [Concomitant]
     Active Substance: ALVERINE
     Dosage: 120 MG, 3X/DAY
  5. APIXABAN [Concomitant]
     Active Substance: APIXABAN
     Dosage: 5 MG, 2X/DAY
  6. ATORVASTATIN [Concomitant]
     Active Substance: ATORVASTATIN
     Dosage: 40 MG, DAILY
  7. CODEINE [Concomitant]
     Active Substance: CODEINE
     Dosage: 30 MG, 2X/DAY
     Dates: start: 20211216
  8. CODEINE [Concomitant]
     Active Substance: CODEINE
     Dosage: 30 MG, 2X/DAY
     Dates: start: 20220128
  9. CHOLECALCIFEROL [Concomitant]
     Active Substance: CHOLECALCIFEROL
     Dosage: 800 UNK, DAILY
  10. FLUOXETINE [Concomitant]
     Active Substance: FLUOXETINE HYDROCHLORIDE
     Dosage: 40 MG
  11. FLUTICASONE [Concomitant]
     Active Substance: FLUTICASONE
     Dosage: 27.5 UG, DAILY
  12. LANSOPRAZOLE [Concomitant]
     Active Substance: LANSOPRAZOLE
     Dosage: 15 MG, DAILY
  13. NITROFURANTOIN [Concomitant]
     Active Substance: NITROFURANTOIN
     Dosage: 100 MG, 2X/DAY
     Dates: start: 20220218
  14. ALBUTEROL [Concomitant]
     Active Substance: ALBUTEROL
     Dosage: UNK
  15. TIOTROPIUM [Concomitant]
     Active Substance: TIOTROPIUM
     Dosage: 2.5 MG, 2X/DAY
  16. ANUSOL HC [Concomitant]
     Active Substance: HYDROCORTISONE
     Dosage: UNK
     Dates: start: 20220210
  17. SPIKEVAX [Concomitant]
     Active Substance: ELASOMERAN
     Dosage: UNK
     Dates: start: 20211128

REACTIONS (3)
  - Erythema [Recovered/Resolved]
  - Stomatitis [Recovered/Resolved]
  - Scab [Recovered/Resolved]
